FAERS Safety Report 9108825 (Version 1)
Quarter: 2013Q1

REPORT INFORMATION
  Report Type: Spontaneous
  Country: US (occurrence: US)
  Receive Date: 20130222
  Receipt Date: 20130222
  Transmission Date: 20140127
  Serious: No
  Sender: FDA-Public Use
  Company Number: US-BIOGENIDEC-2013BI015503

PATIENT
  Sex: Female

DRUGS (1)
  1. TYSABRI [Suspect]
     Indication: MULTIPLE SCLEROSIS
     Route: 042
     Dates: start: 20080118

REACTIONS (9)
  - Blindness [Recovered/Resolved]
  - Diplopia [Recovered/Resolved]
  - Loss of control of legs [Recovered/Resolved]
  - Hypoaesthesia [Recovered/Resolved]
  - Depressed mood [Recovered/Resolved]
  - Gait disturbance [Not Recovered/Not Resolved]
  - Depression [Recovered/Resolved]
  - Frustration [Not Recovered/Not Resolved]
  - Dizziness [Recovered/Resolved]
